FAERS Safety Report 7531586-6 (Version None)
Quarter: 2011Q2

REPORT INFORMATION
  Report Type: 
  Country: None (occurrence: None)
  Receive Date: 20110601
  Receipt Date: 20110518
  Transmission Date: 20111010
  Serious: Yes (Hospitalization, Other)
  Sender: FDA-Public Use
  Company Number: DSJ-2011-09815

PATIENT
  Age: 74 Year
  Sex: Male

DRUGS (6)
  1. OMEPRAZOLE [Concomitant]
  2. ALENDRONATE SODIUM [Concomitant]
  3. GLUCOSAMINE/CHONDROITIN (GLUCOSAMINE, CHONDROITIN SULFATE) [Concomitant]
  4. BENICAR [Suspect]
     Indication: HYPERTENSION
     Dosage: 20, 40  MG (20 MG 1 IN 1 D), PER ORAL
     Route: 048
     Dates: start: 20040101, end: 20091101
  5. BENICAR [Suspect]
     Indication: HYPERTENSION
     Dosage: 20, 40  MG (20 MG 1 IN 1 D), PER ORAL
     Route: 048
     Dates: start: 20091101
  6. CALCIUM CARBONATE [Concomitant]

REACTIONS (3)
  - FEMUR FRACTURE [None]
  - DRUG INEFFECTIVE [None]
  - FALL [None]
